FAERS Safety Report 5130189-0 (Version None)
Quarter: 2006Q4

REPORT INFORMATION
  Report Type: 
  Country: None (occurrence: None)
  Receive Date: 20061013
  Receipt Date: 20060929
  Transmission Date: 20070319
  Serious: Yes (Death)
  Sender: FDA-Public Use
  Company Number: 2006S1009279

PATIENT
  Age: 46 Year
  Sex: Male

DRUGS (1)
  1. FENTANYL TRANSDERMAL SYSTEM [Suspect]
     Dosage: TDER
     Route: 062
     Dates: end: 20050801

REACTIONS (3)
  - DRUG ABUSER [None]
  - DRUG SCREEN POSITIVE [None]
  - OVERDOSE [None]
